FAERS Safety Report 5429124-7 (Version None)
Quarter: 2007Q3

REPORT INFORMATION
  Report Type: 
  Country: None (occurrence: None)
  Receive Date: 20070829
  Receipt Date: 20070824
  Transmission Date: 20080115
  Serious: Yes (Other)
  Sender: FDA-Public Use
  Company Number: US-ALLERGAN-200600434

PATIENT
  Sex: Female

DRUGS (8)
  1. ACULAR LS [Suspect]
     Indication: EYE PAIN
     Dosage: 1GTT, QID
     Route: 047
     Dates: start: 20060103, end: 20060113
  2. ACULAR LS [Suspect]
     Indication: MACULAR OEDEMA
  3. ACULAR LS [Suspect]
     Indication: EYE OEDEMA
  4. ACULAR LS [Suspect]
     Indication: EYE DISORDER
  5. ACULAR LS [Suspect]
     Indication: CORNEAL DYSTROPHY
  6. ACULAR LS [Suspect]
     Indication: POSTOPERATIVE CARE
  7. ACULAR LS [Suspect]
     Indication: INFLAMMATION
  8. MURO-128 [Concomitant]
     Indication: CORNEAL DYSTROPHY
     Dosage: 1GTT, QID
     Route: 047
     Dates: start: 20050811, end: 20060113

REACTIONS (5)
  - CORNEAL DISORDER [None]
  - CORNEAL PERFORATION [None]
  - DOUBLE STRANDED DNA ANTIBODY [None]
  - FLAT ANTERIOR CHAMBER OF EYE [None]
  - ULCERATIVE KERATITIS [None]
